FAERS Safety Report 7128733-7 (Version None)
Quarter: 2010Q4

REPORT INFORMATION
  Report Type: 
  Country: None (occurrence: None)
  Receive Date: 20101130
  Receipt Date: 20101119
  Transmission Date: 20110411
  Serious: Yes (Hospitalization)
  Sender: FDA-Public Use
  Company Number: US-JNJFOC-20101107762

PATIENT
  Sex: Female
  Weight: 49.9 kg

DRUGS (1)
  1. PANCREAZE [Suspect]
     Indication: ENZYME ABNORMALITY
     Route: 048

REACTIONS (5)
  - ABASIA [None]
  - ARTHRALGIA [None]
  - BLOOD INSULIN ABNORMAL [None]
  - JOINT SWELLING [None]
  - PAIN [None]
